FAERS Safety Report 8823095 (Version 2)
Quarter: 2012Q4

REPORT INFORMATION
  Report Type: 
  Country: NZ (occurrence: NZ)
  Receive Date: 20121003
  Receipt Date: 20121024
  Transmission Date: 20130627
  Serious: Yes (Death)
  Sender: FDA-Public Use
  Company Number: NZ-ROCHE-1138809

PATIENT
  Age: 69 Year
  Sex: Female

DRUGS (9)
  1. MABTHERA [Suspect]
     Indication: NON-HODGKIN^S LYMPHOMA
     Route: 042
     Dates: start: 20120910, end: 20120910
  2. CYCLOPHOSPHAMIDE [Concomitant]
     Indication: NON-HODGKIN^S LYMPHOMA
     Route: 065
     Dates: start: 20120910, end: 20120910
  3. DOXORUBICIN [Concomitant]
     Indication: NON-HODGKIN^S LYMPHOMA
     Route: 042
     Dates: start: 20120910, end: 20120910
  4. VINCRISTINE [Concomitant]
     Indication: NON-HODGKIN^S LYMPHOMA
     Route: 042
     Dates: start: 20120910, end: 20120910
  5. PREDNISONE [Concomitant]
     Indication: NON-HODGKIN^S LYMPHOMA
     Route: 048
     Dates: start: 20120910, end: 20120910
  6. NEULASTIM [Concomitant]
     Indication: PROPHYLAXIS
     Route: 065
  7. CYCLIZINE [Concomitant]
  8. METOCLOPRAMIDE [Concomitant]
  9. ONDANSETRON [Concomitant]

REACTIONS (2)
  - Bacterial sepsis [Fatal]
  - Febrile neutropenia [Fatal]
